FAERS Safety Report 6779560-1 (Version None)
Quarter: 2010Q2

REPORT INFORMATION
  Report Type: 
  Country: None (occurrence: None)
  Receive Date: 20100618
  Receipt Date: 20100615
  Transmission Date: 20101027
  Serious: Yes (Death)
  Sender: FDA-Public Use
  Company Number: A0795100A

PATIENT
  Age: 57 Year
  Sex: Male

DRUGS (4)
  1. AVANDIA [Suspect]
     Dosage: 8MG PER DAY
     Route: 048
     Dates: start: 20000530, end: 20030313
  2. HYZAAR [Concomitant]
  3. COZAAR [Concomitant]
  4. DOXAZOSIN MESYLATE [Concomitant]

REACTIONS (1)
  - MYOCARDIAL INFARCTION [None]
